FAERS Safety Report 9353923 (Version 1)
Quarter: 2013Q2

REPORT INFORMATION
  Report Type: Spontaneous
  Country: MX (occurrence: MX)
  Receive Date: 20130618
  Receipt Date: 20130618
  Transmission Date: 20140414
  Serious: Yes (Other)
  Sender: FDA-Public Use
  Company Number: MX-BAYER-2013-072135

PATIENT
  Sex: Female

DRUGS (1)
  1. CANESTEN V OVULOS [Suspect]
     Indication: VAGINAL INFECTION
     Dosage: 200 MG, QD
     Route: 067
     Dates: start: 20130607, end: 20130610

REACTIONS (2)
  - Haemorrhage [None]
  - Exposure during pregnancy [None]
